FAERS Safety Report 11236454 (Version 1)
Quarter: 2015Q3

REPORT INFORMATION
  Report Type: Spontaneous
  Country: RU (occurrence: RU)
  Receive Date: 20150702
  Receipt Date: 20150702
  Transmission Date: 20151125
  Serious: Yes (Death)
  Sender: FDA-Public Use
  Company Number: RU-SA-2015SA092257

PATIENT
  Age: 73 Year
  Sex: Female
  Weight: 75 kg

DRUGS (1)
  1. CLEXANE [Suspect]
     Active Substance: ENOXAPARIN SODIUM
     Route: 058
     Dates: start: 201506, end: 201506

REACTIONS (5)
  - Blood pressure decreased [Unknown]
  - Drug ineffective [Unknown]
  - Heart rate increased [Unknown]
  - Pulmonary embolism [Fatal]
  - Dyspnoea [Unknown]
